FAERS Safety Report 17187199 (Version 2)
Quarter: 2020Q1

REPORT INFORMATION
  Report Type: Report from Study
  Country: US (occurrence: US)
  Receive Date: 20191220
  Receipt Date: 20200313
  Transmission Date: 20200409
  Serious: Yes (Other)
  Sender: FDA-Public Use
  Company Number: NVSC2019US073238

PATIENT
  Age: 6 Year
  Sex: Female

DRUGS (3)
  1. CYCLOPHOSPHAMIDE. [Concomitant]
     Active Substance: CYCLOPHOSPHAMIDE
     Indication: CHEMOTHERAPY
     Route: 065
  2. FLUDARABINE [Concomitant]
     Active Substance: FLUDARABINE PHOSPHATE
     Indication: CHEMOTHERAPY
     Route: 065
  3. KYMRIAH [Suspect]
     Active Substance: TISAGENLECLEUCEL
     Indication: ACUTE LYMPHOCYTIC LEUKAEMIA RECURRENT
     Dosage: 2.0E6 T-CELLS/KG BODY WEIGHT
     Route: 041
     Dates: start: 2018

REACTIONS (13)
  - Haemoglobin decreased [Not Recovered/Not Resolved]
  - Minimal residual disease [Unknown]
  - Viral upper respiratory tract infection [Unknown]
  - Haematocrit decreased [Not Recovered/Not Resolved]
  - Pseudomonas infection [Unknown]
  - Lymphocyte count decreased [Recovered/Resolved]
  - Acute lymphocytic leukaemia recurrent [Unknown]
  - White blood cell count decreased [Recovered/Resolved]
  - Influenza [Unknown]
  - Rhinovirus infection [Unknown]
  - Respirovirus test positive [Unknown]
  - Sinusitis [Unknown]
  - Rubulavirus test positive [Unknown]
